FAERS Safety Report 7054774-4 (Version None)
Quarter: 2010Q4

REPORT INFORMATION
  Report Type: 
  Country: None (occurrence: None)
  Receive Date: 20101020
  Receipt Date: 20101007
  Transmission Date: 20110411
  Serious: Yes (Hospitalization)
  Sender: FDA-Public Use
  Company Number: DE-MYLANLABS-2010S1018436

PATIENT
  Age: 82 Year
  Sex: Female
  Weight: 57 kg

DRUGS (4)
  1. LISINOPRIL AND HYDROCHLOROTHIAZIDE [Suspect]
     Indication: HYPERTENSION
     Dosage: 1 TABLETTE ENTHALT LISINOPRIL 20 MG UND HYDROCHLOROTHIAZID 12.5 MG
     Route: 048
     Dates: end: 20081204
  2. HYDROCHLOROTHIAZIDE [Suspect]
     Indication: HYPERTENSION
     Route: 048
     Dates: end: 20081204
  3. MELNEURIN [Concomitant]
     Indication: SENILE DEMENTIA
     Route: 048
  4. RISPERDAL [Concomitant]
     Indication: SENILE DEMENTIA
     Route: 048

REACTIONS (1)
  - DEHYDRATION [None]
